FAERS Safety Report 14448058 (Version 3)
Quarter: 2018Q2

REPORT INFORMATION
  Report Type: Spontaneous
  Country: US (occurrence: US)
  Receive Date: 20180126
  Receipt Date: 20180625
  Transmission Date: 20180711
  Serious: Yes (Hospitalization)
  Sender: FDA-Public Use
  Company Number: US-PFIZER INC-2018032790

PATIENT
  Age: 76 Year
  Sex: Female
  Weight: 68 kg

DRUGS (2)
  1. LOMOTIL [Suspect]
     Active Substance: ATROPINE SULFATE\DIPHENOXYLATE HYDROCHLORIDE
     Indication: DIARRHOEA
     Dosage: 8 DF, UNK
  2. LOMOTIL [Suspect]
     Active Substance: ATROPINE SULFATE\DIPHENOXYLATE HYDROCHLORIDE
     Dosage: 2 DF,  AS NEEDED

REACTIONS (5)
  - Feeling hot [Recovered/Resolved]
  - Hallucination [Recovered/Resolved]
  - Pyrexia [Recovered/Resolved]
  - Aphasia [Recovered/Resolved]
  - Coma [Recovered/Resolved]

NARRATIVE: CASE EVENT DATE: 201709
